FAERS Safety Report 14363494 (Version 1)
Quarter: 2018Q1

REPORT INFORMATION
  Report Type: Spontaneous
  Country: US (occurrence: US)
  Receive Date: 20180105
  Receipt Date: 20180105
  Transmission Date: 20180509
  Serious: No
  Sender: FDA-Public Use
  Company Number: None

PATIENT
  Age: 74 Year
  Sex: Male

DRUGS (1)
  1. VOSEVI [Suspect]
     Active Substance: SOFOSBUVIR\VELPATASVIR\VOXILAPREVIR

REACTIONS (7)
  - Headache [None]
  - Feeling abnormal [None]
  - Fatigue [None]
  - Drug dose omission [None]
  - Diarrhoea [None]
  - Myalgia [None]
  - Urine analysis abnormal [None]

NARRATIVE: CASE EVENT DATE: 20180105
